FAERS Safety Report 4731136-3 (Version None)
Quarter: 2005Q3

REPORT INFORMATION
  Report Type: 
  Country: None (occurrence: None)
  Receive Date: 20050721
  Receipt Date: 20050406
  Transmission Date: 20060218
  Serious: No
  Sender: FDA-Public Use
  Company Number: 2005SP000103

PATIENT
  Age: 52 Year
  Sex: Male

DRUGS (4)
  1. LUNESTA [Suspect]
     Indication: INSOMNIA
     Dosage: 3 MG;HS;ORAL
     Route: 048
     Dates: start: 20050405
  2. LEXAPRO [Concomitant]
  3. MOBIC [Concomitant]
  4. DURAGESIC-100 [Concomitant]

REACTIONS (1)
  - DYSGEUSIA [None]
